FAERS Safety Report 9932341 (Version 1)
Quarter: 2014Q1

REPORT INFORMATION
  Report Type: Report from Study
  Country: US (occurrence: US)
  Receive Date: 20140228
  Receipt Date: 20140228
  Transmission Date: 20141002
  Serious: No
  Sender: FDA-Public Use
  Company Number: US-ABBVIE-13P-163-1135359-00

PATIENT
  Age: 63 Year
  Sex: Male

DRUGS (3)
  1. PROGRAF [Concomitant]
     Indication: LIVER TRANSPLANT
     Dates: start: 200804
  2. MYFORTIC [Concomitant]
     Indication: LIVER TRANSPLANT
     Dates: start: 200804
  3. ANDROGEL [Suspect]
     Indication: BLOOD TESTOSTERONE DECREASED
     Dosage: ONE PACKET OF 2.5 GRAMS GEL
     Dates: start: 2008

REACTIONS (1)
  - Nasopharyngitis [Recovering/Resolving]
